FAERS Safety Report 8634005 (Version 4)
Quarter: 2014Q3

REPORT INFORMATION
  Report Type: Spontaneous
  Country: US (occurrence: US)
  Receive Date: 20120626
  Receipt Date: 20140827
  Transmission Date: 20150326
  Serious: Yes (Disabling)
  Sender: FDA-Public Use
  Company Number: US-ASTRAZENECA-2012SE35856

PATIENT
  Age: 46 Year
  Sex: Female

DRUGS (50)
  1. SOMA [Concomitant]
     Active Substance: CARISOPRODOL
  2. STADOL [Concomitant]
     Active Substance: BUTORPHANOL TARTRATE
  3. RANITIDINE [Concomitant]
     Active Substance: RANITIDINE\RANITIDINE HYDROCHLORIDE
     Dates: start: 20110830
  4. TOPROL XL [Concomitant]
     Active Substance: METOPROLOL SUCCINATE
     Dates: start: 20130603
  5. POLYCITRA [Concomitant]
  6. NEXIUM [Suspect]
     Active Substance: ESOMEPRAZOLE MAGNESIUM
     Route: 048
     Dates: start: 20081016
  7. TAGAMET [Concomitant]
     Active Substance: CIMETIDINE
  8. ADOVAN [Concomitant]
  9. LYRICA [Concomitant]
     Active Substance: PREGABALIN
  10. AVINZA [Concomitant]
     Active Substance: MORPHINE SULFATE
     Dates: start: 20100506
  11. GUAIFENESIN. [Concomitant]
     Active Substance: GUAIFENESIN
  12. PEPCID [Concomitant]
     Active Substance: FAMOTIDINE
  13. BONIVA [Concomitant]
     Active Substance: IBANDRONATE SODIUM
     Dates: start: 20091106
  14. PROTONIX [Concomitant]
     Active Substance: PANTOPRAZOLE SODIUM
  15. MILK OF MAGNESIA [Concomitant]
     Active Substance: MAGNESIUM HYDROXIDE
  16. ABILIFY [Concomitant]
     Active Substance: ARIPIPRAZOLE
  17. KLONOPIN [Concomitant]
     Active Substance: CLONAZEPAM
     Dates: start: 20130603
  18. PRILOSEC OTC [Concomitant]
     Active Substance: OMEPRAZOLE MAGNESIUM
     Dosage: TWO TIMES A DAY
     Dates: start: 20070918
  19. HISTINEX HC [Concomitant]
  20. PROCHLORPERAZINE. [Concomitant]
     Active Substance: PROCHLORPERAZINE
  21. BUSPIRONE [Concomitant]
     Active Substance: BUSPIRONE HYDROCHLORIDE
  22. IRON [Concomitant]
     Active Substance: IRON
  23. LASIX [Concomitant]
     Active Substance: FUROSEMIDE
  24. CHOLESTYRAMINE. [Concomitant]
     Active Substance: CHOLESTYRAMINE
  25. COLESTID [Concomitant]
     Active Substance: COLESTIPOL HYDROCHLORIDE
  26. KEPPRA [Concomitant]
     Active Substance: LEVETIRACETAM
  27. EFFEXOR XR [Concomitant]
     Active Substance: VENLAFAXINE HYDROCHLORIDE
  28. ROLAIDS [Concomitant]
     Active Substance: CALCIUM CARBONATE\MAGNESIUM HYDROXIDE
  29. TRAZODONE [Concomitant]
     Active Substance: TRAZODONE HYDROCHLORIDE
  30. GAS PILL [Concomitant]
  31. ALPRAZOLAM. [Concomitant]
     Active Substance: ALPRAZOLAM
     Dates: start: 20080908
  32. TUSSIONEX PENNKINETIC [Concomitant]
     Active Substance: CHLORPHENIRAMINE\HYDROCODONE
  33. PREVACID [Concomitant]
     Active Substance: LANSOPRAZOLE
  34. ALKA SELTZER [Concomitant]
     Active Substance: ANHYDROUS CITRIC ACID\ASPIRIN\SODIUM BICARBONATE
  35. MYLANTA [Concomitant]
     Active Substance: ALUMINUM HYDROXIDE\MAGNESIUM HYDROXIDE\SIMETHICONE
  36. AMOXICILLIN. [Concomitant]
     Active Substance: AMOXICILLIN
  37. LEVAQUIN [Concomitant]
     Active Substance: LEVOFLOXACIN
     Dates: start: 20081125
  38. NYSTATIN. [Concomitant]
     Active Substance: NYSTATIN
  39. SALAGEN [Concomitant]
     Active Substance: PILOCARPINE HYDROCHLORIDE
  40. TIZANIDINE [Concomitant]
     Active Substance: TIZANIDINE
  41. PREDNISONE. [Concomitant]
     Active Substance: PREDNISONE
  42. NEXIUM [Suspect]
     Active Substance: ESOMEPRAZOLE MAGNESIUM
     Route: 048
     Dates: start: 20080924, end: 20101120
  43. GAVISCON [Concomitant]
     Active Substance: ALUMINUM HYDROXIDE\MAGNESIUM CARBONATE
  44. PEPTO-BISMOL [Concomitant]
     Active Substance: BISMUTH SUBSALICYLATE\CALCIUM CARBONATE
  45. CELEXA [Concomitant]
     Active Substance: CITALOPRAM HYDROBROMIDE
  46. CARAFATE [Concomitant]
     Active Substance: SUCRALFATE
  47. METOPROLOL [Concomitant]
     Active Substance: METOPROLOL
     Dates: start: 20090127
  48. DEPAKOTE [Concomitant]
     Active Substance: DIVALPROEX SODIUM
  49. NEURONTIN [Concomitant]
     Active Substance: GABAPENTIN
  50. DURATUSS [Concomitant]
     Active Substance: GUAIFENESIN\PSEUDOEPHEDRINE HYDROCHLORIDE

REACTIONS (15)
  - Irritable bowel syndrome [Unknown]
  - Gout [Unknown]
  - Angina pectoris [Unknown]
  - Asthma [Unknown]
  - Chronic obstructive pulmonary disease [Unknown]
  - Osteoporosis [Unknown]
  - Arthritis [Unknown]
  - Fractured coccyx [Unknown]
  - Emphysema [Unknown]
  - Rib fracture [Unknown]
  - Fall [Unknown]
  - Vitamin D deficiency [Unknown]
  - Nephrolithiasis [Unknown]
  - Ankle fracture [Unknown]
  - Bronchitis [Unknown]

NARRATIVE: CASE EVENT DATE: 200911
